APPROVED DRUG PRODUCT: TESTODERM TTS
Active Ingredient: TESTOSTERONE
Strength: 5MG/24HR
Dosage Form/Route: FILM, EXTENDED RELEASE;TRANSDERMAL
Application: N020791 | Product #001
Applicant: ALZA CORP
Approved: Dec 18, 1997 | RLD: No | RS: No | Type: DISCN